FAERS Safety Report 15757831 (Version 1)
Quarter: 2018Q4

REPORT INFORMATION
  Report Type: Other
  Country: FR (occurrence: FR)
  Receive Date: 20181225
  Receipt Date: 20181225
  Transmission Date: 20190205
  Serious: Yes (Other)
  Sender: FDA-Public Use
  Company Number: FR-CELLTRION INC.-2018FR024688

PATIENT

DRUGS (2)
  1. TRUXIMA [Suspect]
     Active Substance: RITUXIMAB-ABBS
     Dosage: 375 MG/M2, 1 CYCLE (1 TOTAL)
     Route: 041
     Dates: start: 201806, end: 201806
  2. TRUXIMA [Suspect]
     Active Substance: RITUXIMAB-ABBS
     Indication: LYMPHOMA
     Dosage: 375 MG/M2, 1 TOTAL
     Route: 041
     Dates: start: 201803, end: 201803

REACTIONS (5)
  - Rash [Recovered/Resolved]
  - Malaise [Recovered/Resolved]
  - Dyspnoea [Recovered/Resolved]
  - Infusion related reaction [Recovered/Resolved]
  - Hypotension [Recovered/Resolved]

NARRATIVE: CASE EVENT DATE: 201803
